FAERS Safety Report 22528160 (Version 1)
Quarter: 2023Q2

REPORT INFORMATION
  Report Type: Report from Study
  Country: CA (occurrence: CA)
  Receive Date: 20230607
  Receipt Date: 20230607
  Transmission Date: 20230722
  Serious: Yes (Hospitalization)
  Sender: FDA-Public Use
  Company Number: CA-JNJFOC-20230603775

PATIENT
  Age: 80 Year
  Sex: Male

DRUGS (2)
  1. IMBRUVICA [Suspect]
     Active Substance: IBRUTINIB
     Indication: Chronic lymphocytic leukaemia
     Route: 048
  2. JANSSEN COVID-19 VACCINE [Suspect]
     Active Substance: AD26.COV2.S
     Indication: COVID-19 prophylaxis
     Dosage: TIME INTERVAL: 1 TOTAL: DOSE 3
     Route: 065

REACTIONS (5)
  - Gait inability [Not Recovered/Not Resolved]
  - COVID-19 immunisation [Unknown]
  - Off label use [Unknown]
  - Suspected COVID-19 [Unknown]
  - Cystitis [Unknown]

NARRATIVE: CASE EVENT DATE: 20230101
